FAERS Safety Report 18563403 (Version 1)
Quarter: 2020Q4

REPORT INFORMATION
  Report Type: Spontaneous
  Country: FR (occurrence: FR)
  Receive Date: 20201201
  Receipt Date: 20201201
  Transmission Date: 20210114
  Serious: Yes (Hospitalization)
  Sender: FDA-Public Use
  Company Number: FR-TEVA-2020-FR-1853546

PATIENT
  Age: 51 Year
  Sex: Male
  Weight: 78.1 kg

DRUGS (2)
  1. TAZOCILLINE [Suspect]
     Active Substance: PIPERACILLIN SODIUM\TAZOBACTAM SODIUM
     Indication: PYREXIA
     Dosage: 12 GRAM DAILY; 4 G EVERY 8 HOURS
     Route: 042
     Dates: start: 20150508, end: 20150509
  2. VANCOMYCINE [Suspect]
     Active Substance: VANCOMYCIN
     Indication: PYREXIA
     Dosage: 4 GRAM DAILY; 2 G EVERY 12 HOURS
     Route: 042
     Dates: start: 20150508, end: 20150509

REACTIONS (2)
  - Acute kidney injury [Recovered/Resolved]
  - Toxic encephalopathy [Recovered/Resolved]

NARRATIVE: CASE EVENT DATE: 20150508
